FAERS Safety Report 17694707 (Version 2)
Quarter: 2020Q2

REPORT INFORMATION
  Report Type: Report from Study
  Country: US (occurrence: SE)
  Receive Date: 20200422
  Receipt Date: 20200519
  Transmission Date: 20200714
  Serious: Yes (Death, Hospitalization)
  Sender: FDA-Public Use
  Company Number: SE-ASTELLAS-2020US014180

PATIENT
  Age: 88 Year
  Sex: Male

DRUGS (11)
  1. WARAN [Concomitant]
     Active Substance: WARFARIN SODIUM
     Indication: ANTICOAGULANT THERAPY
     Dosage: UNK MG, ONCE DAILY
     Route: 048
     Dates: start: 20100805
  2. LEUPRORELIN [Concomitant]
     Active Substance: LEUPROLIDE ACETATE
     Indication: PROSTATE CANCER
     Dosage: UNK MG, EVERY 3 MONTHS
     Route: 058
     Dates: start: 20131113
  3. ENZALUTAMIDE [Suspect]
     Active Substance: ENZALUTAMIDE
     Indication: PROSTATE CANCER
     Dosage: UNK UNK, UNKNOWN FREQ.
     Route: 065
  4. BEHEPAN [CYANOCOBALAMIN] [Concomitant]
     Active Substance: CYANOCOBALAMIN
     Indication: VITAMIN SUPPLEMENTATION
     Dosage: UNK MG, ONCE DAILY
     Route: 048
     Dates: start: 20160927
  5. LASIX [Concomitant]
     Active Substance: FUROSEMIDE
     Indication: CARDIAC FAILURE
     Dosage: UNK MG, ONCE DAILY
     Route: 048
     Dates: start: 20170927
  6. RAMIPRIL. [Concomitant]
     Active Substance: RAMIPRIL
     Indication: HYPERTENSION
     Dosage: UNK MG, ONCE DAILY
     Route: 048
     Dates: start: 20170927
  7. SIMVASTATIN. [Concomitant]
     Active Substance: SIMVASTATIN
     Indication: HYPERLIPIDAEMIA
     Dosage: UNK MG, ONCE DAILY
     Route: 048
     Dates: start: 20170927
  8. ENZALUTAMIDE [Suspect]
     Active Substance: ENZALUTAMIDE
     Indication: PROSTATE CANCER
     Route: 048
     Dates: start: 20150924
  9. DIVISUN [Concomitant]
     Active Substance: CHOLECALCIFEROL
     Indication: VITAMIN SUPPLEMENTATION
     Dosage: UNK IU, ONCE DAILY
     Route: 048
     Dates: start: 20200203
  10. NORVASC [Concomitant]
     Active Substance: AMLODIPINE BESYLATE
     Indication: HYPERTENSION
     Dosage: UNK MG, ONCE DAILY
     Route: 048
     Dates: start: 20170927
  11. METOPROLOL TARTRATE. [Concomitant]
     Active Substance: METOPROLOL TARTRATE
     Indication: HYPERTENSION
     Dosage: UNK MG, ONCE DAILY
     Route: 048
     Dates: start: 20170927

REACTIONS (3)
  - Rib fracture [Fatal]
  - Humerus fracture [Fatal]
  - Hip fracture [Fatal]

NARRATIVE: CASE EVENT DATE: 20200402
